FAERS Safety Report 6823707-5 (Version None)
Quarter: 2010Q3

REPORT INFORMATION
  Report Type: 
  Country: None (occurrence: None)
  Receive Date: 20100708
  Receipt Date: 20060830
  Transmission Date: 20110219
  Serious: No
  Sender: FDA-Public Use
  Company Number: US-PFIZER INC-2006107349

PATIENT
  Sex: Female
  Weight: 90.72 kg

DRUGS (15)
  1. VARENICLINE [Suspect]
     Indication: EX-TOBACCO USER
     Route: 048
     Dates: start: 20060801
  2. WELLBUTRIN [Concomitant]
  3. ADVAIR DISKUS 100/50 [Concomitant]
  4. PROLIXIN [Concomitant]
  5. NEURONTIN [Concomitant]
  6. TOPROL-XL [Concomitant]
  7. FLONASE [Concomitant]
  8. SPIRIVA [Concomitant]
  9. LIPITOR [Concomitant]
  10. PREVACID [Concomitant]
  11. ZYRTEC [Concomitant]
  12. SKELAXIN [Concomitant]
  13. IBUPROFEN [Concomitant]
  14. MULTI-VITAMINS [Concomitant]
  15. ACETYLSALICYLIC ACID [Concomitant]

REACTIONS (3)
  - FATIGUE [None]
  - INSOMNIA [None]
  - SOMNOLENCE [None]
